FAERS Safety Report 7643813-5 (Version None)
Quarter: 2011Q3

REPORT INFORMATION
  Report Type: 
  Country: None (occurrence: None)
  Receive Date: 20110722
  Receipt Date: 20110707
  Transmission Date: 20111222
  Serious: Yes (Other)
  Sender: FDA-Public Use
  Company Number: US-2011-10452

PATIENT
  Sex: Female

DRUGS (12)
  1. DEPAKENE [Concomitant]
  2. NIZATIDINE [Concomitant]
  3. ZYRORIC (ALLOPURINOL) [Concomitant]
  4. BUSULFAN [Suspect]
     Indication: STEM CELL TRANSPLANT
     Dosage: 0.8 MG/KG, QID, INTRAVENOUS
     Route: 042
     Dates: start: 20110619, end: 20110622
  5. FLUDARA [Concomitant]
  6. ZOVIRAX 9ACICLOVIR SODIUM) [Concomitant]
  7. ANTI-THYMOCYTE GLOBULIN RABBIT NOS [Concomitant]
  8. NIFEDIPINE [Concomitant]
  9. POLYMIXIN B SULFATE (POLYMIXIN B SULFATE) [Concomitant]
  10. SULFAMETHOXAZOLE AND TRIMETHOPRIM [Suspect]
     Dosage: 0.5 DF DOSAGE FORM, DAILY DOSE, ORAL
     Route: 048
     Dates: start: 20110616, end: 20110618
  11. BOFVERMIN (BACILLUS SUBTILIS, LACTOBACILLUS ACIDOPHILUS, STREPTOCOCCUS [Concomitant]
  12. METHLPREDNISOLONE SODIUM SUCCINATE (METHYLPREDNISOLONE SODIUM SUCCINAT [Concomitant]

REACTIONS (7)
  - STATUS EPILEPTICUS [None]
  - ALTERED STATE OF CONSCIOUSNESS [None]
  - URINARY INCONTINENCE [None]
  - MALAISE [None]
  - DISORIENTATION [None]
  - SOMNOLENCE [None]
  - BLOOD PRESSURE DECREASED [None]
